FAERS Safety Report 21744641 (Version 1)
Quarter: 2022Q4

REPORT INFORMATION
  Report Type: Spontaneous
  Country: US (occurrence: US)
  Receive Date: 20221218
  Receipt Date: 20221218
  Transmission Date: 20230112
  Serious: Yes (Hospitalization, Other)
  Sender: FDA-Public Use
  Company Number: US-SA-SAC20221215000344

PATIENT
  Age: 56 Year
  Sex: Male

DRUGS (1)
  1. LANTUS [Suspect]
     Active Substance: INSULIN GLARGINE
     Indication: Diabetes mellitus
     Dosage: 30 IU, BID; 30 UNITS IN THE MORNING AND 30 UNITS AT NIGHT
     Route: 058

REACTIONS (4)
  - Road traffic accident [Unknown]
  - Hip arthroplasty [Unknown]
  - Product dose omission issue [Unknown]
  - Inappropriate schedule of product administration [Unknown]
